FAERS Safety Report 8955068 (Version 4)
Quarter: 2013Q3

REPORT INFORMATION
  Report Type: Report from Study
  Country: AR (occurrence: AR)
  Receive Date: 20121207
  Receipt Date: 20130710
  Transmission Date: 20140515
  Serious: Yes (Hospitalization)
  Sender: FDA-Public Use
  Company Number: AR-ASTRAZENECA-2012SE73329

PATIENT
  Age: 23316 Day
  Sex: Female

DRUGS (12)
  1. AZD6140 [Suspect]
     Indication: CORONARY ARTERY DISEASE
     Route: 048
     Dates: start: 20120825, end: 20120914
  2. ASPIRIN [Suspect]
     Route: 048
     Dates: end: 20120915
  3. METFORMINA [Concomitant]
     Indication: TYPE 2 DIABETES MELLITUS
     Route: 048
  4. ANASTRAZOLE [Concomitant]
     Indication: BREAST CANCER RECURRENT
     Route: 048
     Dates: start: 20111218
  5. ESPIRONOLACTONA [Concomitant]
     Indication: CARDIAC FAILURE
     Route: 048
  6. ROSUVASTATINA [Concomitant]
     Indication: DYSLIPIDAEMIA
     Route: 048
  7. OMEPRAZOL [Concomitant]
     Indication: GASTRITIS
     Route: 048
     Dates: start: 20111117
  8. CARVEDILOL [Concomitant]
     Indication: MYOCARDIAL INFARCTION
     Route: 048
     Dates: end: 20120915
  9. CARVEDILOL [Concomitant]
     Indication: CARDIAC FAILURE
     Route: 048
     Dates: end: 20120915
  10. CARVEDILOL [Concomitant]
     Indication: HYPERTENSION
     Route: 048
     Dates: end: 20120915
  11. CIPROFLOXACIN [Concomitant]
     Indication: EAR INFECTION
     Route: 048
     Dates: start: 20120910, end: 20120915
  12. DICLOFENACO [Concomitant]
     Indication: EAR INFECTION
     Route: 048
     Dates: start: 20120910, end: 20120915

REACTIONS (1)
  - Epistaxis [Recovered/Resolved]
